FAERS Safety Report 16340911 (Version 1)
Quarter: 2019Q2

REPORT INFORMATION
  Report Type: Spontaneous
  Country: MT (occurrence: MT)
  Receive Date: 20190522
  Receipt Date: 20190522
  Transmission Date: 20190711
  Serious: Yes (Life-Threatening, Other)
  Sender: FDA-Public Use
  Company Number: MT-AUROBINDO-AUR-APL-2019-026686

PATIENT

DRUGS (2)
  1. QUETIAPINE. [Suspect]
     Active Substance: QUETIAPINE
     Indication: DEMENTIA WITH LEWY BODIES
     Dosage: 25 MILLIGRAM, ONCE A DAY
     Route: 065
  2. BENDROFLUMETHIAZIDE [Concomitant]
     Active Substance: BENDROFLUMETHIAZIDE
     Indication: HYPERTENSION
     Dosage: 2.5 MILLIGRAM
     Route: 065

REACTIONS (3)
  - Malignant hypertension [Recovered/Resolved]
  - Microangiopathic haemolytic anaemia [Recovering/Resolving]
  - Neuroleptic malignant syndrome [Recovered/Resolved]
